FAERS Safety Report 6761724-4 (Version None)
Quarter: 2010Q2

REPORT INFORMATION
  Report Type: 
  Country: None (occurrence: None)
  Receive Date: 20100428
  Receipt Date: 20100415
  Transmission Date: 20101027
  Serious: No
  Sender: FDA-Public Use
  Company Number: CA-144951

PATIENT
  Sex: Female
  Weight: 91.7 kg

DRUGS (5)
  1. WINRHO SDF [Suspect]
     Indication: AUTOIMMUNE THROMBOCYTOPENIA
     Dosage: (54.53 ?G/KG TOTAL)
     Dates: start: 20090818, end: 20090818
  2. BENADRYL [Concomitant]
  3. SOLU-CORTEF [Concomitant]
  4. IMMUNE GLOBULIN NOS [Concomitant]
  5. RITUXIMAB [Concomitant]

REACTIONS (8)
  - ANXIETY [None]
  - CHILLS [None]
  - FLUSHING [None]
  - HAEMOLYSIS [None]
  - HEADACHE [None]
  - NAUSEA [None]
  - PYREXIA [None]
  - TRANSFUSION REACTION [None]
